FAERS Safety Report 23085354 (Version 2)
Quarter: 2023Q4

REPORT INFORMATION
  Report Type: Spontaneous
  Country: JP (occurrence: JP)
  Receive Date: 20231019
  Receipt Date: 20231101
  Transmission Date: 20240109
  Serious: Yes (Hospitalization, Other)
  Sender: FDA-Public Use
  Company Number: JP-MSD-M2023-43731

PATIENT
  Age: 48 Year
  Sex: Male

DRUGS (4)
  1. KEYTRUDA [Suspect]
     Active Substance: PEMBROLIZUMAB
     Indication: Oesophageal squamous cell carcinoma stage IV
     Dosage: 200 MILLIGRAM, Q3W
     Route: 041
     Dates: start: 202209
  2. KEYTRUDA [Suspect]
     Active Substance: PEMBROLIZUMAB
     Dosage: 200 MILLIGRAM, Q3W
     Route: 041
     Dates: end: 202305
  3. CISPLATIN [Concomitant]
     Active Substance: CISPLATIN
     Indication: Oesophageal squamous cell carcinoma stage IV
     Dosage: UNK
     Route: 051
     Dates: start: 202209, end: 202305
  4. FLUOROURACIL [Concomitant]
     Active Substance: FLUOROURACIL
     Indication: Oesophageal squamous cell carcinoma stage IV
     Dosage: UNK
     Route: 051
     Dates: start: 202209, end: 202305

REACTIONS (2)
  - Duodenal ulcer perforation [Recovering/Resolving]
  - Malignant neoplasm progression [Unknown]

NARRATIVE: CASE EVENT DATE: 20221001
